FAERS Safety Report 23026196 (Version 2)
Quarter: 2023Q4

REPORT INFORMATION
  Report Type: Spontaneous
  Country: US (occurrence: US)
  Receive Date: 20231004
  Receipt Date: 20231220
  Transmission Date: 20240110
  Serious: No
  Sender: FDA-Public Use
  Company Number: US-BRISTOL-MYERS SQUIBB COMPANY-2023-140275

PATIENT
  Age: 58 Year
  Sex: Female

DRUGS (1)
  1. ORENCIA [Suspect]
     Active Substance: ABATACEPT
     Indication: Rheumatoid arthritis
     Route: 058
     Dates: start: 202309

REACTIONS (9)
  - Pain [Unknown]
  - Malaise [Unknown]
  - Gait inability [Unknown]
  - Movement disorder [Unknown]
  - Swelling face [Unknown]
  - Dyspnoea [Unknown]
  - Muscular weakness [Unknown]
  - Swollen tongue [Unknown]
  - Lip swelling [Unknown]
